FAERS Safety Report 6108909-8 (Version None)
Quarter: 2009Q1

REPORT INFORMATION
  Report Type: 
  Country: None (occurrence: None)
  Receive Date: 20090306
  Receipt Date: 20090304
  Transmission Date: 20090719
  Serious: Yes (Other)
  Sender: FDA-Public Use
  Company Number: GXKR2009DE02692

PATIENT
  Age: 69 Year
  Sex: Female
  Weight: 65 kg

DRUGS (11)
  1. GABAPENTIN [Suspect]
     Indication: NEURALGIA
     Dosage: 1.2 G/DAILY, ORAL
     Route: 048
     Dates: start: 20081201, end: 20090112
  2. METFORMIN HCL [Suspect]
     Indication: DIABETES MELLITUS
     Dosage: 1 G/DAILY, ORAL
     Route: 048
     Dates: start: 20090110, end: 20090112
  3. ENOXAPARIN SODIUM [Concomitant]
  4. CLONIDINE [Concomitant]
  5. PREDNISONE TAB [Concomitant]
  6. MAGNESIUM (MAGNESIUM) [Concomitant]
  7. METOCLOPRAMIDE [Concomitant]
  8. METRONIDAZOLE [Concomitant]
  9. NEXIUM [Concomitant]
  10. PARACETAMOL (PARACETAMOL) [Concomitant]
  11. ZOPICLON (ZOPICLONE) [Concomitant]

REACTIONS (1)
  - AGRANULOCYTOSIS [None]
